FAERS Safety Report 14506986 (Version 2)
Quarter: 2018Q1

REPORT INFORMATION
  Report Type: Report from Study
  Country: IL (occurrence: IL)
  Receive Date: 20180208
  Receipt Date: 20180329
  Transmission Date: 20180509
  Serious: Yes (Hospitalization, Other)
  Sender: FDA-Public Use
  Company Number: IL-SHIRE-IL201804626

PATIENT

DRUGS (2)
  1. VANCOMYCIN [Suspect]
     Active Substance: VANCOMYCIN
     Indication: DEVICE RELATED INFECTION
     Route: 065
  2. ELAPRASE [Suspect]
     Active Substance: IDURSULFASE
     Indication: MUCOPOLYSACCHARIDOSIS II
     Dosage: 3 VIALS ONCE WEEKLY
     Route: 065

REACTIONS (4)
  - Body temperature increased [Unknown]
  - Device related infection [Recovering/Resolving]
  - Fungal infection [Unknown]
  - Dyspnoea [Recovering/Resolving]
